FAERS Safety Report 23511882 (Version 1)
Quarter: 2024Q1

REPORT INFORMATION
  Report Type: Spontaneous
  Country: US (occurrence: US)
  Receive Date: 20240212
  Receipt Date: 20240212
  Transmission Date: 20240409
  Serious: No
  Sender: FDA-Public Use
  Company Number: US-TEVA-VS-3143253

PATIENT
  Age: 39 Year
  Sex: Female

DRUGS (1)
  1. AUSTEDO XR [Suspect]
     Active Substance: DEUTETRABENAZINE
     Indication: Tardive dyskinesia
     Dosage: QPM
     Route: 065
     Dates: start: 20231226

REACTIONS (2)
  - Abdominal pain upper [Not Recovered/Not Resolved]
  - Migraine [Unknown]
